FAERS Safety Report 17843521 (Version 2)
Quarter: 2020Q2

REPORT INFORMATION
  Report Type: Spontaneous
  Country: US (occurrence: US)
  Receive Date: 20200531
  Receipt Date: 20200603
  Transmission Date: 20200714
  Serious: Yes (Hospitalization, Other)
  Sender: FDA-Public Use
  Company Number: US-HIKMA PHARMACEUTICALS USA INC.-US-H14001-20-02571

PATIENT
  Age: 82 Year
  Sex: Female

DRUGS (1)
  1. ATROPINE. [Suspect]
     Active Substance: ATROPINE
     Indication: PRODUCT USED FOR UNKNOWN INDICATION
     Route: 065

REACTIONS (7)
  - Toxicity to various agents [Recovered/Resolved]
  - Tachycardia [Recovering/Resolving]
  - Incorrect dose administered [Recovering/Resolving]
  - Accidental overdose [Recovering/Resolving]
  - Mydriasis [Recovering/Resolving]
  - Mucosal disorder [Recovering/Resolving]
  - Gastrointestinal sounds abnormal [Recovering/Resolving]
